FAERS Safety Report 7619674-7 (Version None)
Quarter: 2011Q3

REPORT INFORMATION
  Report Type: 
  Country: None (occurrence: None)
  Receive Date: 20110719
  Receipt Date: 20110712
  Transmission Date: 20111222
  Serious: Yes (Other)
  Sender: FDA-Public Use
  Company Number: BR-BAYER-2011-060785

PATIENT
  Age: 34 Year
  Sex: Female
  Weight: 56 kg

DRUGS (3)
  1. MIRENA [Suspect]
     Indication: POLYPECTOMY
     Dosage: 20 MCG/24HR, CONT
     Route: 015
     Dates: start: 20110501
  2. MIRENA [Suspect]
     Indication: CONTRACEPTION
  3. MIRENA [Suspect]
     Indication: MENORRHAGIA

REACTIONS (1)
  - THROMBOCYTOPENIC PURPURA [None]
